FAERS Safety Report 6151927-4 (Version None)
Quarter: 2009Q2

REPORT INFORMATION
  Report Type: 
  Country: None (occurrence: None)
  Receive Date: 20090410
  Receipt Date: 20090406
  Transmission Date: 20091009
  Serious: Yes (Death)
  Sender: FDA-Public Use
  Company Number: NZ-MERCK-0904NZL00002

PATIENT
  Sex: Male

DRUGS (5)
  1. ZOCOR [Suspect]
     Route: 048
     Dates: end: 20070101
  2. CITALOPRAM [Concomitant]
     Indication: DEPRESSION
     Route: 048
     Dates: end: 20070101
  3. OMEPRAZOLE [Concomitant]
     Route: 048
     Dates: end: 20070101
  4. METOPROLOL [Concomitant]
     Route: 048
     Dates: end: 20070101
  5. METFORMIN [Concomitant]
     Indication: TYPE 2 DIABETES MELLITUS
     Route: 048
     Dates: end: 20070101

REACTIONS (2)
  - MUSCULAR WEAKNESS [None]
  - SUDDEN DEATH [None]
